FAERS Safety Report 8325694-X (Version None)
Quarter: 2012Q2

REPORT INFORMATION
  Report Type: 
  Country: None (occurrence: None)
  Receive Date: 20120501
  Receipt Date: 20120501
  Transmission Date: 20120825
  Serious: Yes (Other)
  Sender: FDA-Public Use
  Company Number: None

PATIENT
  Sex: Male
  Weight: 86.182 kg

DRUGS (1)
  1. TRAMADOL HCL [Suspect]
     Indication: ROTATOR CUFF SYNDROME
     Dosage: 1 TABLET AS NEEDED
     Route: 048
     Dates: start: 20120426, end: 20120430

REACTIONS (6)
  - HEART RATE INCREASED [None]
  - DYSURIA [None]
  - CHEST PAIN [None]
  - HALLUCINATION [None]
  - CHEST DISCOMFORT [None]
  - FEELING ABNORMAL [None]
